FAERS Safety Report 5519552-3 (Version None)
Quarter: 2007Q4

REPORT INFORMATION
  Report Type: 
  Country: None (occurrence: None)
  Receive Date: 20071116
  Receipt Date: 20071113
  Transmission Date: 20080405
  Serious: Yes (Other)
  Sender: FDA-Public Use
  Company Number: B0495406A

PATIENT
  Age: 64 Year
  Sex: Male

DRUGS (1)
  1. ZELITREX [Suspect]
     Indication: GENITAL HERPES
     Dosage: 1TAB PER DAY
     Route: 048
     Dates: start: 20070301

REACTIONS (2)
  - ABDOMINAL PAIN [None]
  - PANCREATITIS ACUTE [None]
